FAERS Safety Report 8103779-0 (Version None)
Quarter: 2012Q1

REPORT INFORMATION
  Report Type: 
  Country: None (occurrence: None)
  Receive Date: 20120201
  Receipt Date: 20120124
  Transmission Date: 20120608
  Serious: Yes (Other)
  Sender: FDA-Public Use
  Company Number: US-JNJFOC-20120110703

PATIENT
  Age: 14 Year
  Sex: Male

DRUGS (2)
  1. CLONIDINE [Concomitant]
     Indication: SLEEP DISORDER THERAPY
     Route: 048
  2. CONCERTA [Suspect]
     Indication: ATTENTION DEFICIT/HYPERACTIVITY DISORDER
     Route: 048
     Dates: start: 20100101

REACTIONS (5)
  - SELF-INJURIOUS IDEATION [None]
  - DEPRESSION [None]
  - CRIME [None]
  - MEDICATION ERROR [None]
  - DISTURBANCE IN ATTENTION [None]
